FAERS Safety Report 11983467 (Version 2)
Quarter: 2016Q1

REPORT INFORMATION
  Report Type: Spontaneous
  Country: JP (occurrence: JP)
  Receive Date: 20160201
  Receipt Date: 20160310
  Transmission Date: 20160526
  Serious: Yes (Other)
  Sender: FDA-Public Use
  Company Number: JP-PFIZER INC-2016049455

PATIENT
  Age: 52 Year
  Sex: Female

DRUGS (3)
  1. AMOXAN [Concomitant]
     Active Substance: AMOXAPINE
     Dosage: 25 MG, DAILY
     Route: 048
  2. EFFEXOR [Suspect]
     Active Substance: VENLAFAXINE HYDROCHLORIDE
     Dosage: 37.5 MG, DAILY
     Route: 048
     Dates: start: 20151224
  3. JZOLOFT [Concomitant]
     Active Substance: SERTRALINE HYDROCHLORIDE
     Dosage: 50 MG, DAILY
     Route: 048

REACTIONS (2)
  - Abnormal behaviour [Unknown]
  - Mania [Unknown]

NARRATIVE: CASE EVENT DATE: 20160107
